FAERS Safety Report 19033894 (Version 1)
Quarter: 2021Q1

REPORT INFORMATION
  Report Type: Spontaneous
  Country: US (occurrence: US)
  Receive Date: 20210319
  Receipt Date: 20210319
  Transmission Date: 20210420
  Serious: No
  Sender: FDA-Public Use
  Company Number: US-BRECKENRIDGE PHARMACEUTICAL, INC.-2108225

PATIENT

DRUGS (1)
  1. ASENAPINE. [Suspect]
     Active Substance: ASENAPINE
     Route: 060

REACTIONS (4)
  - Therapeutic product ineffective [None]
  - Sleep disorder [None]
  - Anxiety [None]
  - Constipation [None]
